FAERS Safety Report 16379942 (Version 1)
Quarter: 2019Q2

REPORT INFORMATION
  Report Type: Spontaneous
  Country: US (occurrence: US)
  Receive Date: 20190531
  Receipt Date: 20190531
  Transmission Date: 20190711
  Serious: No
  Sender: FDA-Public Use
  Company Number: US-SAGENT PHARMACEUTICALS-2019SAG000110

PATIENT

DRUGS (3)
  1. GLYDO [Suspect]
     Active Substance: LIDOCAINE HYDROCHLORIDE ANHYDROUS
     Indication: CYSTOSCOPY
     Dosage: 11 ML, ONCE
     Route: 066
     Dates: start: 20190117, end: 20190117
  2. ATIVAN [Concomitant]
     Active Substance: LORAZEPAM
     Indication: PREMEDICATION
     Dosage: 1 MG, ONCE
     Route: 048
     Dates: start: 20190117, end: 20190117
  3. KEFLEX [Concomitant]
     Active Substance: CEPHALEXIN
     Indication: PREMEDICATION
     Dosage: 500 MG, ONCE
     Route: 048
     Dates: start: 20190117, end: 20190117

REACTIONS (4)
  - Anaphylactoid reaction [Unknown]
  - Dyspnoea [Unknown]
  - Urticaria [Unknown]
  - Hypotension [Unknown]

NARRATIVE: CASE EVENT DATE: 20190117
